FAERS Safety Report 12400369 (Version 1)
Quarter: 2016Q2

REPORT INFORMATION
  Report Type: Spontaneous
  Country: GB (occurrence: GB)
  Receive Date: 20160525
  Receipt Date: 20160525
  Transmission Date: 20160815
  Serious: Yes (Death, Hospitalization)
  Sender: FDA-Public Use
  Company Number: GB-ROCHE-1762489

PATIENT
  Age: 78 Year
  Sex: Male
  Weight: 68.5 kg

DRUGS (6)
  1. APREPITANT. [Concomitant]
     Active Substance: APREPITANT
     Route: 065
     Dates: start: 20160219, end: 20160222
  2. FRUSEMIDE [Concomitant]
     Active Substance: FUROSEMIDE
     Route: 065
     Dates: start: 20160219
  3. CISPLATIN. [Concomitant]
     Active Substance: CISPLATIN
     Route: 065
     Dates: start: 20160219
  4. CAPECITABINE. [Suspect]
     Active Substance: CAPECITABINE
     Indication: OESOPHAGEAL ADENOCARCINOMA
     Route: 048
     Dates: start: 20160219, end: 20160225
  5. CANDESARTAN [Concomitant]
     Active Substance: CANDESARTAN
     Route: 065
  6. ONDANSETRON [Concomitant]
     Active Substance: ONDANSETRON
     Route: 065

REACTIONS (4)
  - Myocarditis [Fatal]
  - Circulatory collapse [Fatal]
  - Dizziness [Recovered/Resolved]
  - Atrial fibrillation [Unknown]

NARRATIVE: CASE EVENT DATE: 20160225
